FAERS Safety Report 6686059-X (Version None)
Quarter: 2010Q2

REPORT INFORMATION
  Report Type: 
  Country: None (occurrence: None)
  Receive Date: 20100414
  Receipt Date: 20100330
  Transmission Date: 20101027
  Serious: Yes (Other)
  Sender: FDA-Public Use
  Company Number: IPC201004-000110

PATIENT
  Age: 55 Year
  Sex: Female

DRUGS (1)
  1. CHLOROQUINE PHOSPHATE [Suspect]
     Indication: RHEUMATOID ARTHRITIS
     Dosage: 250 MG, 1 IN 1 D

REACTIONS (3)
  - OPTIC ATROPHY [None]
  - RETINAL DEGENERATION [None]
  - SCOTOMA [None]
